FAERS Safety Report 4524593-9 (Version None)
Quarter: 2004Q4

REPORT INFORMATION
  Report Type: 
  Country: None (occurrence: None)
  Receive Date: 20041117
  Receipt Date: 20040629
  Transmission Date: 20050328
  Serious: Yes (Life-Threatening)
  Sender: FDA-Public Use
  Company Number: US-JNJFOC-20040705628

PATIENT
  Age: 86 Year
  Sex: Male

DRUGS (10)
  1. LEVOFLOXACIN [Suspect]
     Indication: BRONCHITIS
     Dosage: 500 MG, 1 IN 1 DAY
     Dates: start: 20030213, end: 20030213
  2. ADVAIR DISKUS (SERETIDE MITE) [Concomitant]
  3. ALBUTEROL [Concomitant]
  4. ATROVENT [Concomitant]
  5. FUROSEMIDE [Concomitant]
  6. KCL (POTASSIUM CHLORIDE) [Concomitant]
  7. LIPITOR [Concomitant]
  8. METHYLPREDNISOLONE [Concomitant]
  9. MIRADEX (ALL OTHER THERAPEUTIC PRODUCTS) [Concomitant]
  10. PLETAL [Concomitant]

REACTIONS (3)
  - ATRIAL FIBRILLATION [None]
  - TORSADE DE POINTES [None]
  - VENTRICULAR TACHYCARDIA [None]
